FAERS Safety Report 11414211 (Version 1)
Quarter: 2015Q3

REPORT INFORMATION
  Report Type: Spontaneous
  Country: CH (occurrence: CH)
  Receive Date: 20150824
  Receipt Date: 20150824
  Transmission Date: 20151125
  Serious: Yes (Hospitalization)
  Sender: FDA-Public Use
  Company Number: CH-MEDA-2015080044

PATIENT
  Age: 68 Year
  Sex: Male

DRUGS (10)
  1. NOZINAN [Suspect]
     Active Substance: LEVOMEPROMAZINE
     Route: 048
     Dates: end: 20150506
  2. PANTOZOL [Suspect]
     Active Substance: PANTOPRAZOLE SODIUM
     Route: 048
     Dates: end: 20150506
  3. TOREM [Suspect]
     Active Substance: TORSEMIDE
     Route: 048
     Dates: end: 20150521
  4. SINTROM [Suspect]
     Active Substance: ACENOCOUMAROL
     Indication: ATRIAL FIBRILLATION
     Route: 048
  5. ALLOPUR [Suspect]
     Active Substance: ALLOPURINOL
     Route: 048
     Dates: end: 20150506
  6. METOPROLOL [Suspect]
     Active Substance: METOPROLOL
     Indication: HYPERTENSION
     Route: 048
  7. DORZOLAMIDE HYDROCHLORIDE-TIMOLOL MALEATE [Concomitant]
     Active Substance: DORZOLAMIDE HYDROCHLORIDE\TIMOLOL MALEATE
     Indication: GLAUCOMA
  8. TIMOGEL [Concomitant]
     Active Substance: TIMOLOL MALEATE
     Indication: GLAUCOMA
  9. CYMBALTA [Suspect]
     Active Substance: DULOXETINE HYDROCHLORIDE
     Dosage: 60 MG IN THE MORNING AND 30 MG IN THE EVENING
     Route: 048
     Dates: end: 20150506
  10. CHELIDONINE [Suspect]
     Active Substance: CHELIDONINE
     Indication: DYSPEPSIA
     Route: 048
     Dates: start: 201504, end: 201505

REACTIONS (5)
  - Hepatic steatosis [None]
  - Hepatic fibrosis [None]
  - Drug-induced liver injury [Recovering/Resolving]
  - Jaundice cholestatic [Recovering/Resolving]
  - Liver function test abnormal [Recovering/Resolving]

NARRATIVE: CASE EVENT DATE: 20150502
